FAERS Safety Report 8567695-2 (Version None)
Quarter: 2012Q3

REPORT INFORMATION
  Report Type: 
  Country: None (occurrence: None)
  Receive Date: 20120803
  Receipt Date: 20120723
  Transmission Date: 20120928
  Serious: Yes (Disabling)
  Sender: FDA-Public Use
  Company Number: US-ELI_LILLY_AND_COMPANY-US201207007328

PATIENT

DRUGS (2)
  1. CYMBALTA [Suspect]
     Dosage: 90 MG, TAKES 60 MG AND 30 MG
  2. CYMBALTA [Suspect]
     Indication: DEPRESSION
     Dosage: 60 MG, UNK

REACTIONS (2)
  - DRUG INEFFECTIVE [None]
  - DISABILITY [None]
